FAERS Safety Report 8402572-9 (Version None)
Quarter: 2012Q2

REPORT INFORMATION
  Report Type: 
  Country: None (occurrence: None)
  Receive Date: 20120601
  Receipt Date: 20120529
  Transmission Date: 20120825
  Serious: Yes (Death, Hospitalization)
  Sender: FDA-Public Use
  Company Number: PHHY2012MY046194

PATIENT
  Sex: Female

DRUGS (1)
  1. GLEEVEC [Suspect]
     Indication: CHRONIC MYELOID LEUKAEMIA
     Dosage: 600 MG, DAILY

REACTIONS (8)
  - SUBDURAL HAEMORRHAGE [None]
  - GENERAL PHYSICAL HEALTH DETERIORATION [None]
  - CHRONIC MYELOID LEUKAEMIA [None]
  - THROMBOSIS [None]
  - FALL [None]
  - DEATH [None]
  - NEOPLASM MALIGNANT [None]
  - PLATELET COUNT DECREASED [None]
